FAERS Safety Report 9485704 (Version 1)
Quarter: 2013Q3

REPORT INFORMATION
  Report Type: Spontaneous
  Country: US (occurrence: None)
  Receive Date: 20130827
  Receipt Date: 20130827
  Transmission Date: 20140515
  Serious: No
  Sender: FDA-Public Use
  Company Number: None

PATIENT
  Age: 48 Year
  Sex: Female

DRUGS (9)
  1. LINEZOLID [Suspect]
     Indication: SEPSIS
     Route: 042
     Dates: start: 20130420, end: 20130428
  2. LEVAQUIN [Suspect]
     Route: 042
     Dates: end: 20130428
  3. LISINOPRIL [Concomitant]
  4. METHIMAZOLE [Concomitant]
  5. LEVOTHYROXINE [Concomitant]
  6. PROTONIX [Concomitant]
  7. EPIPEN [Concomitant]
  8. TPN [Concomitant]
  9. INTRALIPIDS [Concomitant]

REACTIONS (1)
  - Thrombocytopenia [None]
